FAERS Safety Report 7928673-7 (Version None)
Quarter: 2011Q4

REPORT INFORMATION
  Report Type: 
  Country: None (occurrence: None)
  Receive Date: 20111118
  Receipt Date: 20111117
  Transmission Date: 20120403
  Serious: Yes (Death, Life-Threatening, Hospitalization)
  Sender: FDA-Public Use
  Company Number: GB-ABBOTT-11P-167-0861679-00

PATIENT
  Age: 64 Year
  Sex: Male
  Weight: 95 kg

DRUGS (7)
  1. CLARITHROMYCIN [Suspect]
     Indication: LOWER RESPIRATORY TRACT INFECTION
     Dosage: 1 TABLET EARLY PM; 1 TABLET IN EVENING
     Route: 065
  2. LISINOPRIL [Concomitant]
     Indication: PRODUCT USED FOR UNKNOWN INDICATION
  3. BENDROFLUMETHIAZIDE [Concomitant]
     Indication: PRODUCT USED FOR UNKNOWN INDICATION
  4. BETNOVATE [Concomitant]
     Indication: PRODUCT USED FOR UNKNOWN INDICATION
  5. AMITRIPTYLINE HCL [Concomitant]
     Indication: PRODUCT USED FOR UNKNOWN INDICATION
  6. DOXAZOSIN MESYLATE [Concomitant]
     Indication: PRODUCT USED FOR UNKNOWN INDICATION
  7. LEVOTHYROXINE SODIUM [Concomitant]
     Indication: PRODUCT USED FOR UNKNOWN INDICATION

REACTIONS (19)
  - UPPER AIRWAY OBSTRUCTION [None]
  - LEFT VENTRICULAR HYPERTROPHY [None]
  - LARYNGEAL OEDEMA [None]
  - ARTERIOSCLEROSIS CORONARY ARTERY [None]
  - BRONCHOPULMONARY ASPERGILLOSIS [None]
  - HEPATIC CONGESTION [None]
  - ANAPHYLACTIC REACTION [None]
  - RESPIRATORY TRACT OEDEMA [None]
  - GASTRITIS HAEMORRHAGIC [None]
  - BRONCHOPNEUMONIA [None]
  - ORGANISING PNEUMONIA [None]
  - HEPATIC STEATOSIS [None]
  - ACUTE LUNG INJURY [None]
  - ACUTE RESPIRATORY DISTRESS SYNDROME [None]
  - TONGUE OEDEMA [None]
  - PULMONARY OEDEMA [None]
  - PULMONARY CAVITATION [None]
  - KIDNEY FIBROSIS [None]
  - ARTERIOSCLEROSIS [None]
